FAERS Safety Report 4422160-9 (Version None)
Quarter: 2004Q3

REPORT INFORMATION
  Report Type: 
  Country: None (occurrence: None)
  Receive Date: 20040712
  Receipt Date: 20030917
  Transmission Date: 20050211
  Serious: No
  Sender: FDA-Public Use
  Company Number: TAP2003Q02165

PATIENT

DRUGS (1)
  1. PREVACID [Suspect]
     Indication: DRUG USE FOR UNKNOWN INDICATION
     Dosage: 30 MG, UNKNOWN; PER ORAL
     Route: 048

REACTIONS (1)
  - HAEMOLYTIC ANAEMIA [None]
